FAERS Safety Report 7680434-2 (Version None)
Quarter: 2011Q3

REPORT INFORMATION
  Report Type: 
  Country: None (occurrence: None)
  Receive Date: 20110812
  Receipt Date: 20110805
  Transmission Date: 20111222
  Serious: Yes (Hospitalization, Other)
  Sender: FDA-Public Use
  Company Number: US-AMGEN-USASP2011038804

PATIENT
  Age: 57 Year
  Sex: Female

DRUGS (2)
  1. ENBREL [Suspect]
     Indication: CONNECTIVE TISSUE DISORDER
     Dosage: 50 MG, QWK
     Dates: start: 20110615, end: 20110714
  2. METHOTREXATE [Concomitant]
     Dosage: 1 MG, QWK
     Dates: start: 20110615

REACTIONS (5)
  - MEMORY IMPAIRMENT [None]
  - HEADACHE [None]
  - THROMBOSIS [None]
  - CONNECTIVE TISSUE DISORDER [None]
  - JOINT CONTRACTURE [None]
